FAERS Safety Report 20684092 (Version 2)
Quarter: 2023Q2

REPORT INFORMATION
  Report Type: Spontaneous
  Country: JP (occurrence: JP)
  Receive Date: 20220407
  Receipt Date: 20230522
  Transmission Date: 20230721
  Serious: Yes (Death, Other)
  Sender: FDA-Public Use
  Company Number: JP-CHUGAI-2022003050AA

PATIENT
  Age: 78 Year
  Sex: Female
  Weight: 42.5 kg

DRUGS (2)
  1. GAZYVA [Suspect]
     Active Substance: OBINUTUZUMAB
     Indication: Follicular lymphoma
     Dosage: 1000 MILLIGRAM, QD
     Route: 042
     Dates: start: 20200907, end: 20200907
  2. BENDAMUSTINE HYDROCHLORIDE [Suspect]
     Active Substance: BENDAMUSTINE HYDROCHLORIDE
     Indication: Product used for unknown indication
     Dosage: 90 MILLIGRAM/KILOGRAM, QD  MOST RECENT DOSE 09/SEP/2020
     Route: 041
     Dates: start: 20200908

REACTIONS (3)
  - Tumour lysis syndrome [Fatal]
  - Cardio-respiratory arrest [Unknown]
  - Disease progression [Fatal]

NARRATIVE: CASE EVENT DATE: 20200911
